FAERS Safety Report 7395422-3 (Version None)
Quarter: 2011Q2

REPORT INFORMATION
  Report Type: 
  Country: None (occurrence: None)
  Receive Date: 20110405
  Receipt Date: 20101001
  Transmission Date: 20111010
  Serious: Yes (Other)
  Sender: FDA-Public Use
  Company Number: US-BAYER-201024848NA

PATIENT
  Sex: Female
  Weight: 70.295 kg

DRUGS (1)
  1. YAZ [Suspect]
     Indication: CONTRACEPTION
     Dosage: UNK UNK, QD
     Route: 048
     Dates: start: 20060901, end: 20100401

REACTIONS (3)
  - GALLBLADDER DISORDER [None]
  - CHOLECYSTITIS [None]
  - MENTAL DISORDER [None]
